FAERS Safety Report 15090286 (Version 2)
Quarter: 2018Q3

REPORT INFORMATION
  Report Type: Spontaneous
  Country: DE (occurrence: DE)
  Receive Date: 20180629
  Receipt Date: 20180911
  Transmission Date: 20181010
  Serious: Yes (Other)
  Sender: FDA-Public Use
  Company Number: PHHY2018DE029143

PATIENT
  Sex: Male
  Weight: 85 kg

DRUGS (2)
  1. TAFINLAR [Suspect]
     Active Substance: DABRAFENIB MESYLATE
     Indication: MALIGNANT MELANOMA
     Dosage: 150 MG, QD
     Route: 065
     Dates: start: 20110624, end: 20131029
  2. PEMBROLIZUMAB. [Concomitant]
     Active Substance: PEMBROLIZUMAB
     Indication: MALIGNANT MELANOMA
     Dosage: UNK
     Route: 065
     Dates: start: 201609

REACTIONS (6)
  - Mediastinum neoplasm [Recovered/Resolved]
  - Pneumonitis [Recovered/Resolved]
  - Metastases to pleura [Unknown]
  - Malignant neoplasm progression [Recovering/Resolving]
  - Malignant melanoma [Recovered/Resolved with Sequelae]
  - Metastases to lung [Recovered/Resolved with Sequelae]

NARRATIVE: CASE EVENT DATE: 20140325
